FAERS Safety Report 8456987-3 (Version None)
Quarter: 2012Q2

REPORT INFORMATION
  Report Type: 
  Country: None (occurrence: None)
  Receive Date: 20120614
  Receipt Date: 20120608
  Transmission Date: 20120825
  Serious: Yes (Other)
  Sender: FDA-Public Use
  Company Number: 2012MA007152

PATIENT
  Age: 66 Year
  Sex: Male

DRUGS (5)
  1. ASPIRIN [Concomitant]
  2. ADIZEM-XL [Concomitant]
  3. CLOPIDOGREL [Concomitant]
  4. RAMIPRIL [Suspect]
     Indication: HYPERTENSION
     Dosage: 2.5 MG;QD;PO
     Route: 048
     Dates: start: 20120216, end: 20120508
  5. SIMVASTATIN [Concomitant]

REACTIONS (3)
  - SWOLLEN TONGUE [None]
  - EXFOLIATIVE RASH [None]
  - DERMATITIS BULLOUS [None]
